FAERS Safety Report 16934668 (Version 2)
Quarter: 2019Q4

REPORT INFORMATION
  Report Type: Spontaneous
  Country: DE (occurrence: DE)
  Receive Date: 20191018
  Receipt Date: 20191231
  Transmission Date: 20200122
  Serious: Yes (Other)
  Sender: FDA-Public Use
  Company Number: DE-SUN PHARMACEUTICAL INDUSTRIES LTD-2019RR-224269

PATIENT
  Sex: Female
  Weight: 94 kg

DRUGS (1)
  1. CIPRO BASICS 500MG FILMTABLETTEN [Suspect]
     Active Substance: CIPROFLOXACIN HYDROCHLORIDE
     Indication: FOLLICULITIS
     Dosage: 3 DOSAGE FORM, DAILY
     Route: 065
     Dates: start: 20190918, end: 20190922

REACTIONS (3)
  - Sudden hearing loss [Not Recovered/Not Resolved]
  - Headache [Recovering/Resolving]
  - Memory impairment [Not Recovered/Not Resolved]

NARRATIVE: CASE EVENT DATE: 20190922
